FAERS Safety Report 10416106 (Version 1)
Quarter: 2014Q2

REPORT INFORMATION
  Report Type: Spontaneous
  Country: US (occurrence: None)
  Receive Date: 20140604
  Receipt Date: 20140604
  Transmission Date: 20141212
  Serious: Yes (Hospitalization)
  Sender: FDA-Public Use
  Company Number: 163-POMAL-14040145

PATIENT
  Age: 85 Year
  Sex: Male
  Weight: 50.8 kg

DRUGS (11)
  1. POMALYST (POMALIDOMIDE) (1 MILLIGRAM, CAPSULES) [Suspect]
     Indication: PLASMA CELL MYELOMA
     Route: 048
     Dates: start: 20130328
  2. ASPIRIN (ACETYLSALICYLIC ACID) [Concomitant]
  3. DEXAMETHASONE [Concomitant]
  4. MULTIVITAMINS [Concomitant]
  5. ACETAMINOPHEN-CODEINE (SOLPADEINE) [Concomitant]
  6. ACYCLOVIR (ACICLOVIR) (ACICLOVIR) [Concomitant]
  7. AMINOCAPROIC ACID [Concomitant]
  8. LEVOFLOXACIN [Concomitant]
  9. RAPAFLO (SILODOSIN) [Concomitant]
  10. AZITHROMYCIN [Concomitant]
  11. CHLORHEXIDINE GLUCONATE [Concomitant]

REACTIONS (2)
  - Dyspnoea [None]
  - Constipation [None]
